FAERS Safety Report 8195654 (Version 2)
Quarter: 2013Q2

REPORT INFORMATION
  Report Type: Report from Study
  Country: US (occurrence: US)
  Receive Date: 20111024
  Receipt Date: 20130628
  Transmission Date: 20140414
  Serious: No
  Sender: FDA-Public Use
  Company Number: US-JNJFOC-20111006643

PATIENT
  Age: 14 Year
  Sex: Male
  Weight: 46.2 kg

DRUGS (2)
  1. INFLIXIMAB, RECOMBINANT [Suspect]
     Indication: INFLAMMATORY BOWEL DISEASE
     Route: 042
     Dates: start: 20100806
  2. AZATHIOPRINE [Concomitant]

REACTIONS (1)
  - Episcleritis [Recovered/Resolved]
